FAERS Safety Report 9643998 (Version 1)
Quarter: 2013Q4

REPORT INFORMATION
  Report Type: Spontaneous
  Country: GR (occurrence: None)
  Receive Date: 20131023
  Receipt Date: 20131023
  Transmission Date: 20140711
  Serious: Yes (Other)
  Sender: FDA-Public Use
  Company Number: ABR_01214_2013

PATIENT
  Sex: 0

DRUGS (2)
  1. GLIADEL [Suspect]
     Indication: MALIGNANT GLIOMA
     Dosage: (DF [4-8 WAFERS] INTRACEREBRAL)
  2. RADIOTHERAPY [Concomitant]

REACTIONS (1)
  - Post procedural haematoma [None]
